FAERS Safety Report 4598309-4 (Version None)
Quarter: 2005Q1

REPORT INFORMATION
  Report Type: 
  Country: None (occurrence: None)
  Receive Date: 20050304
  Receipt Date: 20050228
  Transmission Date: 20050727
  Serious: Yes (Other)
  Sender: FDA-Public Use
  Company Number: PHBS2005ES03058

PATIENT
  Age: 66 Year
  Sex: Female

DRUGS (7)
  1. THIORIDAZINE HCL [Suspect]
     Indication: SCHIZOAFFECTIVE DISORDER
     Dosage: 50 - 100 MG/D
     Route: 065
  2. BIPERIDEN HYDROCHLORIDE TAB [Concomitant]
     Dosage: 4 MG/D
     Route: 065
  3. PIMOZIDE [Concomitant]
     Dosage: 4 MG/D
     Route: 065
  4. LEVOMEPROMAZINE [Concomitant]
     Dosage: 100 MG/D
     Route: 065
  5. HALOPERIDOL [Concomitant]
     Dosage: 2 MG/D
     Route: 065
  6. ZUCLOPENTHIXOL [Concomitant]
     Dosage: 35 MG/D
     Route: 065
  7. FLUVOXAMINE MALEATE [Concomitant]
     Dosage: 50 MG/D
     Route: 065

REACTIONS (4)
  - DYSKINESIA [None]
  - NEPHRECTOMY [None]
  - NEPHROLITHIASIS [None]
  - TREMOR [None]
